FAERS Safety Report 9492091 (Version 2)
Quarter: 2013Q4

REPORT INFORMATION
  Report Type: Spontaneous
  Country: US (occurrence: US)
  Receive Date: 20130830
  Receipt Date: 20131009
  Transmission Date: 20140711
  Serious: No
  Sender: FDA-Public Use
  Company Number: US-PFIZER INC-2013245733

PATIENT
  Age: 38 Year
  Sex: Female
  Weight: 107.94 kg

DRUGS (5)
  1. CELEBREX [Suspect]
     Indication: BACK PAIN
     Dosage: 200 MG, UNK
     Dates: start: 20130815
  2. CELEBREX [Suspect]
     Indication: MIGRAINE
  3. LYRICA [Suspect]
     Dosage: UNK
  4. BACLOFEN [Concomitant]
     Dosage: UNK
  5. TYLENOL W/CODEINE NO. 3 [Concomitant]
     Dosage: UNK

REACTIONS (2)
  - Malaise [Unknown]
  - Activities of daily living impaired [Unknown]
